FAERS Safety Report 6139563-7 (Version None)
Quarter: 2009Q1

REPORT INFORMATION
  Report Type: 
  Country: None (occurrence: None)
  Receive Date: 20090324
  Receipt Date: 20090323
  Transmission Date: 20090719
  Serious: Yes (Hospitalization)
  Sender: FDA-Public Use
  Company Number: SPV1-2009-00492

PATIENT
  Age: 68 Year
  Sex: Female
  Weight: 36.7 kg

DRUGS (4)
  1. FOSRENOL [Suspect]
     Indication: DIALYSIS
     Dosage: 1000 MG, 3X/DAY:TID, ORAL
     Route: 048
     Dates: start: 20080101
  2. AMITRIPTLINE HYDROCHLORIDE TAB [Suspect]
     Indication: NERVE INJURY
     Dosage: ORAL
     Route: 048
     Dates: start: 20080101, end: 20090101
  3. SENSIPAR [Suspect]
     Indication: BLOOD CALCIUM
     Dosage: 25 MG, 1X/DAY:QD, ORAL
     Route: 048
     Dates: start: 20080101
  4. VITAMINS /00067501/ (ASCORBIC ACID, ERGOCALCIFEROL, NICOTINAMIDE, RETI [Concomitant]

REACTIONS (6)
  - ABDOMINAL PAIN UPPER [None]
  - CEREBROVASCULAR ACCIDENT [None]
  - DISEASE COMPLICATION [None]
  - HYPERPHOSPHATAEMIA [None]
  - NERVE INJURY [None]
  - TREMOR [None]
